FAERS Safety Report 4601887-X (Version None)
Quarter: 2005Q1

REPORT INFORMATION
  Report Type: 
  Country: None (occurrence: None)
  Receive Date: 20050201
  Receipt Date: 20040120
  Transmission Date: 20050727
  Serious: Yes (Other)
  Sender: FDA-Public Use
  Company Number: 200411410BWH

PATIENT
  Age: 86 Year
  Sex: Female
  Weight: 53.0709 kg

DRUGS (7)
  1. AVELOX [Suspect]
     Indication: BRONCHITIS
     Dosage: 400 MG, ONCE, ORAL
     Route: 048
     Dates: start: 20040119
  2. AVELOX [Suspect]
     Indication: COUGH
     Dosage: 400 MG, ONCE, ORAL
     Route: 048
     Dates: start: 20040119
  3. ALLEGRA-D [Suspect]
     Dates: start: 20040119
  4. ROBITUSSIN (GUAIFENESIN) [Suspect]
     Dates: start: 20040119
  5. LESCOL [Concomitant]
  6. OCUVITE [Concomitant]
  7. ASPIRIN [Concomitant]

REACTIONS (5)
  - ASTHENIA [None]
  - DIZZINESS [None]
  - GAIT DISTURBANCE [None]
  - HYPOTENSION [None]
  - LOSS OF CONSCIOUSNESS [None]
